FAERS Safety Report 7210154-X (Version None)
Quarter: 2011Q1

REPORT INFORMATION
  Report Type: 
  Country: None (occurrence: None)
  Receive Date: 20110105
  Receipt Date: 20101231
  Transmission Date: 20110831
  Serious: Yes (Death, Other)
  Sender: FDA-Public Use
  Company Number: JP-BRISTOL-MYERS SQUIBB COMPANY-15463953

PATIENT
  Age: 55 Year
  Sex: Male

DRUGS (13)
  1. CYCLOPHOSPHAMIDE [Suspect]
  2. DOXORUBICIN [Suspect]
  3. CARBOPLATIN [Suspect]
  4. METHOTREXATE [Suspect]
  5. IRINOTECAN [Suspect]
     Dosage: 1 DF - 30MG/M SUP(2)DAY ON DAY 1-3
  6. GEMCITABINE [Suspect]
  7. ETOPOSIDE [Suspect]
  8. CISPLATIN [Suspect]
  9. VINCRISTINE [Suspect]
  10. DEXAMETHASONE [Suspect]
     Dosage: DAY 6-4
  11. IFOSFAMIDE [Suspect]
  12. PREDNISOLONE [Suspect]
  13. CYTARABINE [Suspect]

REACTIONS (3)
  - RENAL FAILURE ACUTE [None]
  - NEOPLASM MALIGNANT [None]
  - POLYOMAVIRUS-ASSOCIATED NEPHROPATHY [None]
